FAERS Safety Report 14560617 (Version 5)
Quarter: 2018Q2

REPORT INFORMATION
  Report Type: Spontaneous
  Country: JP (occurrence: JP)
  Receive Date: 20180222
  Receipt Date: 20180516
  Transmission Date: 20180711
  Serious: Yes (Disabling)
  Sender: FDA-Public Use
  Company Number: JP-VIFOR (INTERNATIONAL) INC.-VIT-2018-01822

PATIENT
  Age: 65 Year
  Sex: Male

DRUGS (15)
  1. CALONAL [Suspect]
     Active Substance: ACETAMINOPHEN
     Indication: BACK PAIN
     Route: 065
     Dates: end: 20180205
  2. EPINASTINE HYDROCHLORIDE. [Concomitant]
     Active Substance: EPINASTINE HYDROCHLORIDE
     Route: 048
  3. DIAZEPAM. [Concomitant]
     Active Substance: DIAZEPAM
     Route: 065
  4. SENNOSIDE A+B [Concomitant]
     Active Substance: SENNOSIDES A AND B
     Route: 048
  5. VELPHORO [Suspect]
     Active Substance: FERRIC OXYHYDROXIDE
     Route: 048
     Dates: start: 20180210, end: 20180401
  6. LYRICA [Concomitant]
     Active Substance: PREGABALIN
     Indication: BACK PAIN
     Route: 048
     Dates: start: 20171006, end: 20171218
  7. BAYASPIRIN [Concomitant]
     Active Substance: ASPIRIN
     Indication: POSTOPERATIVE CARE
     Route: 048
     Dates: start: 20180115
  8. VELPHORO [Suspect]
     Active Substance: FERRIC OXYHYDROXIDE
     Route: 048
     Dates: start: 20170823, end: 20171222
  9. ZOPICLONE [Concomitant]
     Active Substance: ZOPICLONE
     Route: 048
  10. VELPHORO [Suspect]
     Active Substance: FERRIC OXYHYDROXIDE
     Indication: HYPERPHOSPHATAEMIA
     Route: 048
     Dates: start: 20170628, end: 20170823
  11. VELPHORO [Suspect]
     Active Substance: FERRIC OXYHYDROXIDE
     Route: 048
     Dates: start: 20171222, end: 20180210
  12. VELPHORO [Suspect]
     Active Substance: FERRIC OXYHYDROXIDE
     Route: 048
     Dates: start: 20180401
  13. ALINAMIN EX PLUS ALPHA [Concomitant]
     Active Substance: CYANOCOBALAMIN\FURSULTIAMINE\GAMMA ORYZANOL\PYRIDOXINE\TOCOPHEROL
     Indication: BACK PAIN
     Route: 065
     Dates: start: 20180113
  14. REGPARA [Concomitant]
     Active Substance: CINACALCET HYDROCHLORIDE
     Route: 048
  15. LANSOPRAZOLE. [Concomitant]
     Active Substance: LANSOPRAZOLE
     Indication: POSTOPERATIVE CARE
     Dates: start: 20180115

REACTIONS (4)
  - Malaise [Unknown]
  - C-reactive protein increased [Not Recovered/Not Resolved]
  - Hepatic function abnormal [Recovered/Resolved]
  - Serum ferritin increased [Recovered/Resolved]

NARRATIVE: CASE EVENT DATE: 20180205
